FAERS Safety Report 10226622 (Version 2)
Quarter: 2015Q2

REPORT INFORMATION
  Report Type: Spontaneous
  Country: US (occurrence: US)
  Receive Date: 20140609
  Receipt Date: 20150608
  Transmission Date: 20150821
  Serious: No
  Sender: FDA-Public Use
  Company Number: US-AMGEN INC.-USASP2014041026

PATIENT
  Age: 57 Year
  Sex: Male
  Weight: 49 kg

DRUGS (4)
  1. EPOGEN [Suspect]
     Active Substance: ERYTHROPOIETIN
     Indication: ANAEMIA
  2. VALPROIC ACID. [Concomitant]
     Active Substance: VALPROIC ACID
     Indication: SEIZURE
     Dosage: 250 MG, QD
     Dates: start: 20140204
  3. VITAMIN C [Concomitant]
     Active Substance: ASCORBIC ACID
     Indication: PROMOTION OF WOUND HEALING
     Dosage: 500 MG, QD
     Dates: start: 20140204
  4. EPOGEN [Suspect]
     Active Substance: ERYTHROPOIETIN
     Indication: CHRONIC KIDNEY DISEASE
     Dosage: 12000 UNK, 3 TIMES/WK
     Route: 042
     Dates: start: 20140204

REACTIONS (1)
  - Incorrect product storage [Recovered/Resolved]

NARRATIVE: CASE EVENT DATE: 20140522
